FAERS Safety Report 23339885 (Version 2)
Quarter: 2024Q1

REPORT INFORMATION
  Report Type: Report from Study
  Country: CA (occurrence: CA)
  Receive Date: 20231226
  Receipt Date: 20240110
  Transmission Date: 20240409
  Serious: Yes (Hospitalization)
  Sender: FDA-Public Use
  Company Number: CA-BIOGEN-2023BI01242297

PATIENT
  Age: 57 Year
  Sex: Female

DRUGS (1)
  1. DALFAMPRIDINE [Suspect]
     Active Substance: DALFAMPRIDINE
     Indication: Multiple sclerosis
     Route: 050
     Dates: start: 20230712

REACTIONS (6)
  - Pelvic fracture [Not Recovered/Not Resolved]
  - Fractured coccyx [Not Recovered/Not Resolved]
  - Gait inability [Unknown]
  - Fall [Recovered/Resolved]
  - Mobility decreased [Unknown]
  - Face injury [Unknown]

NARRATIVE: CASE EVENT DATE: 20231217
